FAERS Safety Report 7020358-7 (Version None)
Quarter: 2010Q3

REPORT INFORMATION
  Report Type: 
  Country: None (occurrence: None)
  Receive Date: 20100927
  Receipt Date: 20100914
  Transmission Date: 20110219
  Serious: Yes (Other)
  Sender: FDA-Public Use
  Company Number: COM10-1232

PATIENT
  Age: 78 Year
  Sex: Female

DRUGS (4)
  1. ZOLPIDEM [Suspect]
     Indication: SLEEP DISORDER
     Dosage: 1 PO HS
     Dates: start: 20090101, end: 20100101
  2. SEROQUEL [Concomitant]
  3. CEREFOLIN [Concomitant]
  4. VITAMIN B COMPLEX CAP [Concomitant]

REACTIONS (4)
  - CYANOSIS [None]
  - HYPOTENSION [None]
  - LETHARGY [None]
  - UNRESPONSIVE TO STIMULI [None]
